FAERS Safety Report 16782294 (Version 2)
Quarter: 2020Q1

REPORT INFORMATION
  Report Type: Spontaneous
  Country: US (occurrence: US)
  Receive Date: 20190906
  Receipt Date: 20200325
  Transmission Date: 20200409
  Serious: Yes (Other)
  Sender: FDA-Public Use
  Company Number: US-BAUSCH-BL-2019-025137

PATIENT
  Age: 63 Year
  Sex: Female

DRUGS (2)
  1. ENTOCORT [Suspect]
     Active Substance: BUDESONIDE
     Indication: COLITIS MICROSCOPIC
     Route: 065
     Dates: start: 2012, end: 201409
  2. ENTOCORT [Suspect]
     Active Substance: BUDESONIDE
     Route: 065
     Dates: start: 201409, end: 201410

REACTIONS (1)
  - Cushing^s syndrome [Recovering/Resolving]

NARRATIVE: CASE EVENT DATE: 2013
